FAERS Safety Report 21789761 (Version 3)
Quarter: 2023Q1

REPORT INFORMATION
  Report Type: Spontaneous
  Country: US (occurrence: US)
  Receive Date: 20221228
  Receipt Date: 20230112
  Transmission Date: 20230417
  Serious: Yes (Other)
  Sender: FDA-Public Use
  Company Number: US-JNJFOC-20221246805

PATIENT
  Age: 38 Year
  Sex: Female

DRUGS (2)
  1. THROMBIN HUMAN [Suspect]
     Active Substance: THROMBIN HUMAN
     Indication: Haemostasis
     Route: 065
     Dates: start: 20221212, end: 20221212
  2. VISTASEAL [Suspect]
     Active Substance: FIBRINOGEN HUMAN\HUMAN THROMBIN
     Indication: Haemostasis
     Route: 065
     Dates: start: 20221212, end: 20221212

REACTIONS (3)
  - Haemorrhage [Recovered/Resolved]
  - Drug ineffective [Recovered/Resolved]
  - Procedural complication [Recovered/Resolved]

NARRATIVE: CASE EVENT DATE: 20221212
